FAERS Safety Report 19647400 (Version 1)
Quarter: 2021Q3

REPORT INFORMATION
  Report Type: Spontaneous
  Country: DE (occurrence: DE)
  Receive Date: 20210802
  Receipt Date: 20210802
  Transmission Date: 20211014
  Serious: Yes (Other)
  Sender: FDA-Public Use
  Company Number: DE-SAMSUNG BIOEPIS-SB-2021-18002

PATIENT
  Age: 67 Year
  Sex: Male
  Weight: 83 kg

DRUGS (1)
  1. BENEPALI [Suspect]
     Active Substance: ETANERCEPT
     Indication: ANKYLOSING SPONDYLITIS
     Dosage: 50 MG S.C. WEEKLY
     Route: 058
     Dates: start: 20180503, end: 20180919

REACTIONS (8)
  - Abdominal discomfort [Unknown]
  - Weight bearing difficulty [Unknown]
  - Rheumatic disorder [Recovering/Resolving]
  - Anal incontinence [Unknown]
  - Palpitations [Unknown]
  - Atrial fibrillation [Unknown]
  - Condition aggravated [Recovering/Resolving]
  - Atrial flutter [Unknown]

NARRATIVE: CASE EVENT DATE: 20180517
